FAERS Safety Report 18038940 (Version 11)
Quarter: 2021Q2

REPORT INFORMATION
  Report Type: Report from Study
  Country: None (occurrence: US)
  Receive Date: 20200718
  Receipt Date: 20210629
  Transmission Date: 20210717
  Serious: Yes (Hospitalization, Other)
  Sender: FDA-Public Use
  Company Number: US-ABBVIE-20K-163-3442787-00

PATIENT
  Age: 56 Year
  Sex: Female
  Weight: 90.8 kg

DRUGS (4)
  1. HUMIRA [Suspect]
     Active Substance: ADALIMUMAB
     Dosage: CITRATE FREE
     Route: 058
     Dates: start: 20200713
  2. HUMIRA [Suspect]
     Active Substance: ADALIMUMAB
     Indication: ANKYLOSING SPONDYLITIS
     Dosage: CITRATE FREE
     Route: 058
     Dates: start: 201909, end: 20200302
  3. LISINOPRIL HCTZ [Concomitant]
     Active Substance: HYDROCHLOROTHIAZIDE\LISINOPRIL
     Indication: HYPERTENSION
  4. TYLENOL [Concomitant]
     Active Substance: ACETAMINOPHEN
     Indication: ARTHRALGIA

REACTIONS (30)
  - Peripheral swelling [Not Recovered/Not Resolved]
  - Rotator cuff syndrome [Recovering/Resolving]
  - Joint range of motion decreased [Recovered/Resolved]
  - Pain in extremity [Not Recovered/Not Resolved]
  - Chondropathy [Unknown]
  - Pain [Not Recovered/Not Resolved]
  - Musculoskeletal stiffness [Unknown]
  - Injection site haemorrhage [Unknown]
  - Shoulder arthroplasty [Recovered/Resolved]
  - General physical health deterioration [Not Recovered/Not Resolved]
  - Grip strength decreased [Unknown]
  - General physical health deterioration [Unknown]
  - Arthralgia [Recovering/Resolving]
  - Joint swelling [Unknown]
  - Dysstasia [Recovered/Resolved]
  - Injection site papule [Recovered/Resolved]
  - Paraesthesia [Unknown]
  - Back pain [Unknown]
  - Therapeutic product effect decreased [Unknown]
  - Fatigue [Unknown]
  - Loss of personal independence in daily activities [Unknown]
  - Incorrect dose administered [Recovered/Resolved]
  - Dry eye [Unknown]
  - Tenderness [Unknown]
  - Wrong technique in product usage process [Recovered/Resolved]
  - Discomfort [Not Recovered/Not Resolved]
  - Neck pain [Unknown]
  - Arthropathy [Recovering/Resolving]
  - Mobility decreased [Recovered/Resolved]
  - Injection site papule [Unknown]

NARRATIVE: CASE EVENT DATE: 2019
